FAERS Safety Report 7770046-4 (Version None)
Quarter: 2011Q3

REPORT INFORMATION
  Report Type: 
  Country: None (occurrence: None)
  Receive Date: 20110922
  Receipt Date: 20110308
  Transmission Date: 20111222
  Serious: No
  Sender: FDA-Public Use
  Company Number: US-ASTRAZENECA-2011SE01448

PATIENT
  Age: 21043 Day
  Sex: Male
  Weight: 113.4 kg

DRUGS (10)
  1. KLONOPIN [Concomitant]
     Indication: ANXIETY
     Route: 048
  2. SEROQUEL [Suspect]
     Route: 048
     Dates: start: 20100813
  3. NEXIUM [Concomitant]
     Indication: ABDOMINAL DISCOMFORT
  4. CLONAZEPAM [Concomitant]
     Indication: ANXIETY
  5. SEROQUEL [Suspect]
     Indication: BIPOLAR DISORDER
     Route: 048
     Dates: end: 20100101
  6. TEMAZEPAM [Concomitant]
     Indication: SLEEP DISORDER
     Route: 048
     Dates: start: 20080101
  7. SEROQUEL [Suspect]
     Route: 048
     Dates: start: 20101007
  8. SEROQUEL [Suspect]
     Route: 048
     Dates: start: 20110102
  9. LISINOPRIL [Concomitant]
     Indication: HYPERTENSION
  10. PROZAC [Concomitant]
     Indication: DEPRESSION
     Route: 048
     Dates: start: 20080101

REACTIONS (10)
  - SLEEP DISORDER [None]
  - SOMNOLENCE [None]
  - AKATHISIA [None]
  - SLEEP DISORDER DUE TO A GENERAL MEDICAL CONDITION [None]
  - DECREASED INTEREST [None]
  - MUSCULOSKELETAL STIFFNESS [None]
  - ASTHENIA [None]
  - RESTLESS LEGS SYNDROME [None]
  - PSYCHOMOTOR HYPERACTIVITY [None]
  - DRUG DOSE OMISSION [None]
